FAERS Safety Report 8721783 (Version 2)
Quarter: 2012Q4

REPORT INFORMATION
  Report Type: 
  Country: US (occurrence: US)
  Receive Date: 20120814
  Receipt Date: 20120830
  Transmission Date: 20130627
  Serious: Yes (Other)
  Sender: FDA-Public Use
  Company Number: US-SANOFI-AVENTIS-2012SA056784

PATIENT
  Age: 64 Year
  Sex: Male
  Weight: 79.37 kg

DRUGS (27)
  1. LANTUS [Suspect]
     Indication: DIABETES
     Dosage: Dose:25 unit(s)
     Route: 058
     Dates: start: 200802, end: 20120808
  2. LANTUS [Suspect]
     Indication: DIABETES
     Dosage: Dose:25 unit(s)
     Route: 058
     Dates: start: 200802, end: 20120808
  3. LANTUS [Suspect]
     Indication: DIABETES
     Dosage: Dose:30 unit(s)
     Route: 058
     Dates: start: 20120808
  4. LISINOPRIL [Concomitant]
     Indication: KIDNEY DISORDER
     Dates: start: 2008
  5. METOPROLOL [Concomitant]
     Indication: HEART RATE INCREASED
     Dates: start: 2008
  6. GABAPENTIN [Concomitant]
     Indication: NEUROPATHY
     Dates: start: 201203
  7. ALL OTHER THERAPEUTIC PRODUCTS [Concomitant]
     Indication: MUSCLE RELAXATION
     Dosage: 10 mg in am and 20 mg pm
     Dates: start: 201203
  8. ALLOPURINOL [Concomitant]
     Indication: GOUT
     Dates: start: 201204
  9. ASPIRIN [Concomitant]
  10. TRAMADOL [Concomitant]
  11. MELATONIN [Concomitant]
  12. STOOL SOFTENER [Concomitant]
  13. ENDOCET [Concomitant]
     Dosage: 10/325
     Dates: start: 20120727
  14. LYSINE [Concomitant]
  15. CALCIUM [Concomitant]
  16. VITAMIN D3 [Concomitant]
     Dosage: Dose:800 unit(s)
  17. MAGNESIUM [Concomitant]
  18. VITAMIN B12 [Concomitant]
  19. Q10 [Concomitant]
  20. VITAMIN C [Concomitant]
  21. NIACIN [Concomitant]
  22. CENTRUM SILVER [Concomitant]
  23. GLUCOSAMINE [Concomitant]
  24. MSM [Concomitant]
  25. GRAPE SEED [Concomitant]
  26. FISH OIL [Concomitant]
  27. BACTERIA NOS [Concomitant]

REACTIONS (2)
  - Back disorder [Unknown]
  - Blood glucose increased [Unknown]
